FAERS Safety Report 16859903 (Version 2)
Quarter: 2019Q4

REPORT INFORMATION
  Report Type: Spontaneous
  Country: US (occurrence: US)
  Receive Date: 20190927
  Receipt Date: 20191022
  Transmission Date: 20200122
  Serious: No
  Sender: FDA-Public Use
  Company Number: US-009507513-1909USA009145

PATIENT
  Age: 43 Year
  Sex: Female

DRUGS (2)
  1. FOLLISTIM AQ [Suspect]
     Active Substance: FOLLITROPIN
     Dosage: 150 INTERNATIONAL UNIT, UNK
  2. FOLLISTIM AQ [Suspect]
     Active Substance: FOLLITROPIN
     Dosage: 150 INTERNATIONAL UNIT, UNK

REACTIONS (4)
  - Wrong product administered [Unknown]
  - Product packaging issue [Unknown]
  - Incorrect dose administered [Unknown]
  - Pain [Unknown]

NARRATIVE: CASE EVENT DATE: 20190918
